FAERS Safety Report 10016017 (Version 1)
Quarter: 2014Q1

REPORT INFORMATION
  Report Type: Spontaneous
  Country: US (occurrence: US)
  Receive Date: 20140317
  Receipt Date: 20140317
  Transmission Date: 20141002
  Serious: Yes (Other)
  Sender: FDA-Public Use
  Company Number: US-BAYER-2014-036137

PATIENT
  Age: 86 Year
  Sex: Female
  Weight: 58 kg

DRUGS (4)
  1. ALEVE CAPLET [Suspect]
     Indication: ANALGESIC THERAPY
     Dosage: 1 DF, PRN
     Route: 048
  2. ALEVE CAPLET [Suspect]
     Indication: MUSCULOSKELETAL PAIN
  3. ALEVE CAPLET [Suspect]
     Indication: INFLAMMATION
  4. PYRIDOSTIGMINE [Concomitant]

REACTIONS (1)
  - Blood pressure increased [Not Recovered/Not Resolved]
